FAERS Safety Report 5975750-6 (Version None)
Quarter: 2008Q4

REPORT INFORMATION
  Report Type: 
  Country: None (occurrence: None)
  Receive Date: 20081202
  Receipt Date: 20081121
  Transmission Date: 20090506
  Serious: Yes (Disabling, Other)
  Sender: FDA-Public Use
  Company Number: PR-MERCK-0805USA02807

PATIENT
  Age: 46 Year
  Sex: Female

DRUGS (1)
  1. FOSAMAX [Suspect]
     Route: 048
     Dates: start: 20030601, end: 20070101

REACTIONS (7)
  - ADVERSE EVENT [None]
  - BREAST DISORDER [None]
  - DENTAL CARIES [None]
  - DISABILITY [None]
  - OSTEONECROSIS [None]
  - PAIN IN JAW [None]
  - TOOTH FRACTURE [None]
